FAERS Safety Report 14818801 (Version 1)
Quarter: 2018Q2

REPORT INFORMATION
  Report Type: Spontaneous
  Country: US (occurrence: US)
  Receive Date: 20180427
  Receipt Date: 20180427
  Transmission Date: 20180711
  Serious: Yes (Death, Hospitalization, Other)
  Sender: FDA-Public Use
  Company Number: US-ORION CORPORATION ORION PHARMA-18_00003476

PATIENT
  Sex: Male

DRUGS (4)
  1. AMOXICILLIN. [Interacting]
     Active Substance: AMOXICILLIN
     Indication: INFECTION
     Route: 065
  2. LEFLUNOMIDE. [Interacting]
     Active Substance: LEFLUNOMIDE
     Indication: RHEUMATOID ARTHRITIS
     Route: 065
  3. METHOTREXATE. [Interacting]
     Active Substance: METHOTREXATE
     Route: 065
  4. METHOTREXATE. [Suspect]
     Active Substance: METHOTREXATE
     Indication: RHEUMATOID ARTHRITIS
     Route: 065

REACTIONS (5)
  - Drug interaction [Unknown]
  - Pancytopenia [Unknown]
  - Death [Fatal]
  - Toxicity to various agents [Unknown]
  - Intentional product use issue [Unknown]
